FAERS Safety Report 9733658 (Version 1)
Quarter: 2013Q4

REPORT INFORMATION
  Report Type: Report from Study
  Country: JP (occurrence: JP)
  Receive Date: 20131205
  Receipt Date: 20131205
  Transmission Date: 20140711
  Serious: Yes (Hospitalization, Other)
  Sender: FDA-Public Use
  Company Number: JP-TAKEDA-2013TJP003405

PATIENT
  Age: 76 Year
  Sex: Male
  Weight: 67 kg

DRUGS (3)
  1. ALOGLIPTIN [Suspect]
     Indication: TYPE 2 DIABETES MELLITUS
     Dosage: 12.5 MG, QD
     Route: 048
     Dates: start: 20120514, end: 20120722
  2. ALOGLIPTIN [Suspect]
     Dosage: 25 MG, QD
     Route: 048
     Dates: start: 20120723, end: 201211
  3. DIOVAN [Concomitant]
     Dosage: 40 MG, 1 DAYS
     Route: 048

REACTIONS (2)
  - Epilepsy [Recovered/Resolved]
  - Arrhythmia [Recovering/Resolving]
